FAERS Safety Report 8784222 (Version 2)
Quarter: 2013Q4

REPORT INFORMATION
  Report Type: Spontaneous
  Country: CA (occurrence: CA)
  Receive Date: 20120913
  Receipt Date: 20131031
  Transmission Date: 20140711
  Serious: Yes (Other)
  Sender: FDA-Public Use
  Company Number: CA-009507513-1209CAN005494

PATIENT
  Sex: Male

DRUGS (1)
  1. JANUMET [Suspect]
     Indication: TYPE 2 DIABETES MELLITUS

REACTIONS (2)
  - Cholelithiasis [Recovered/Resolved]
  - Cholelithotomy [Recovered/Resolved]
